FAERS Safety Report 8019525-5 (Version None)
Quarter: 2012Q1

REPORT INFORMATION
  Report Type: 
  Country: None (occurrence: None)
  Receive Date: 20120103
  Receipt Date: 20111230
  Transmission Date: 20120608
  Serious: Yes (Death)
  Sender: FDA-Public Use
  Company Number: PHHY2011CA81052

PATIENT
  Sex: Male

DRUGS (10)
  1. LORAZEPAM [Concomitant]
     Dosage: 1 DF,DAILY
  2. BRIMONIDINE TARTRATE [Concomitant]
  3. VITAMIN D [Concomitant]
     Dosage: 1 DF, QD
  4. VITAMIN B-12 [Concomitant]
     Dosage: 1 DF, QD
  5. TAMSULOSIN HCL [Concomitant]
     Dosage: 1 DF, QD
  6. VITAMIN B1 TAB [Concomitant]
     Dosage: 1 DF, QD
  7. MULTI-VITAMINS [Concomitant]
     Dosage: 1 DF, QD
  8. CLOZARIL [Suspect]
     Indication: SCHIZOPHRENIA
     Dosage: 225 MG/DAY (TWO TABLET 100 MG, TWICE A DAY WITH 25 MG TABLET FOR TOTAL DOSE OF 225 MG)
     Route: 048
     Dates: start: 19940101, end: 20110101
  9. APO-K [Concomitant]
     Dosage: 1 DF,DAILY
  10. SIMVASTATIN [Concomitant]
     Dosage: 1 DF, QD

REACTIONS (1)
  - DEATH [None]
